FAERS Safety Report 10926813 (Version 1)
Quarter: 2015Q1

REPORT INFORMATION
  Report Type: Spontaneous
  Country: PT (occurrence: PT)
  Receive Date: 20150318
  Receipt Date: 20150318
  Transmission Date: 20150721
  Serious: Yes (Death, Other)
  Sender: FDA-Public Use
  Company Number: PT-GILEAD-2015-0142352

PATIENT
  Age: 18 Year
  Sex: Male
  Weight: 34 kg

DRUGS (2)
  1. CAYSTON [Suspect]
     Active Substance: AZTREONAM
     Indication: BRONCHIECTASIS
     Dosage: UNK
     Route: 065
     Dates: start: 20150309, end: 20150309
  2. CAYSTON [Suspect]
     Active Substance: AZTREONAM
     Indication: PSEUDOMONAS INFECTION

REACTIONS (4)
  - Off label use [Unknown]
  - Respiratory failure [Fatal]
  - Condition aggravated [Unknown]
  - Fatigue [Unknown]

NARRATIVE: CASE EVENT DATE: 20150309
